FAERS Safety Report 25214042 (Version 5)
Quarter: 2025Q2

REPORT INFORMATION
  Report Type: Spontaneous
  Country: US (occurrence: US)
  Receive Date: 20250418
  Receipt Date: 20250620
  Transmission Date: 20250717
  Serious: Yes (Other)
  Sender: PFIZER
  Company Number: US-PFIZER INC-202500077884

PATIENT
  Age: 71 Year
  Sex: Male

DRUGS (17)
  1. IBRANCE [Suspect]
     Active Substance: PALBOCICLIB
     Route: 048
     Dates: start: 20250118
  2. IBRANCE [Suspect]
     Active Substance: PALBOCICLIB
     Route: 048
  3. IBRANCE [Suspect]
     Active Substance: PALBOCICLIB
     Route: 048
     Dates: end: 202506
  4. BUMETANIDE [Concomitant]
     Active Substance: BUMETANIDE
     Dosage: 1MG TABLET-1 TABLET BY MOUTH ONCE DAILY
     Route: 048
  5. CHOLESTYRAMINE [Concomitant]
     Active Substance: CHOLESTYRAMINE
     Dosage: 4 GRAMS OF POWDER MIXED IN WATER THREE TIMES DAILY WITH MEALS
  6. CHOLECALCIFEROL [Concomitant]
     Active Substance: CHOLECALCIFEROL
  7. FLECAINIDE ACETATE [Concomitant]
     Active Substance: FLECAINIDE ACETATE
  8. LATANOPROST [Concomitant]
     Active Substance: LATANOPROST
  9. LOPERAMIDE [Concomitant]
     Active Substance: LOPERAMIDE
  10. OPIUM TINCTURE [Concomitant]
     Active Substance: MORPHINE
  11. PANTOPRAZOLE [Concomitant]
     Active Substance: PANTOPRAZOLE
     Dosage: 40MG TABLET-1 TABLET BY MOUTH TWICE DAILY
     Route: 048
  12. SPIRONOLACTONE [Concomitant]
     Active Substance: SPIRONOLACTONE
     Dosage: 25MG TABLET-2 TABLETS (50MG) BY MOUTH ONCE DAILY
     Route: 048
  13. SUCRALFATE [Concomitant]
     Active Substance: SUCRALFATE
     Dosage: 1 GRAM TABLET-1 TABLET BY MOUTH FOUR TIMES DAILY
     Route: 048
  14. HERBALS\TURMERIC [Concomitant]
     Active Substance: HERBALS\TURMERIC
  15. MIRTAZAPINE [Concomitant]
     Active Substance: MIRTAZAPINE
  16. ZOFRAN [Concomitant]
     Active Substance: ONDANSETRON HYDROCHLORIDE
  17. PROCHLORPERAZINE [Concomitant]
     Active Substance: PROCHLORPERAZINE

REACTIONS (7)
  - Feeding disorder [Recovering/Resolving]
  - Breast mass [Not Recovered/Not Resolved]
  - Decreased appetite [Recovering/Resolving]
  - Diarrhoea [Recovering/Resolving]
  - Nipple pain [Recovering/Resolving]
  - Hypoaesthesia [Not Recovered/Not Resolved]
  - Nausea [Recovering/Resolving]

NARRATIVE: CASE EVENT DATE: 20250301
